FAERS Safety Report 12581965 (Version 1)
Quarter: 2016Q3

REPORT INFORMATION
  Report Type: Spontaneous
  Country: US (occurrence: US)
  Receive Date: 20160722
  Receipt Date: 20160722
  Transmission Date: 20161109
  Serious: Yes (Hospitalization, Other)
  Sender: FDA-Public Use
  Company Number: US-CEDAR PHARMACEUTICALS LLC-1055389

PATIENT
  Age: 18 Year
  Sex: Female

DRUGS (1)
  1. METHIMAZOLE. [Suspect]
     Active Substance: METHIMAZOLE
     Indication: BASEDOW^S DISEASE

REACTIONS (5)
  - Systemic candida [Unknown]
  - Periorbital cellulitis [Unknown]
  - Cerebral venous thrombosis [Unknown]
  - Bone marrow failure [Recovering/Resolving]
  - Thyrotoxic crisis [Unknown]
